FAERS Safety Report 10198913 (Version 1)
Quarter: 2014Q2

REPORT INFORMATION
  Report Type: Spontaneous
  Country: US (occurrence: US)
  Receive Date: 20140527
  Receipt Date: 20140527
  Transmission Date: 20141212
  Serious: No
  Sender: FDA-Public Use
  Company Number: US-NOVEN-13US007715

PATIENT
  Sex: Male
  Weight: 27.21 kg

DRUGS (2)
  1. DAYTRANA [Suspect]
     Indication: ATTENTION DEFICIT/HYPERACTIVITY DISORDER
     Dosage: 10 MG, UNK
     Route: 062
     Dates: start: 2012
  2. CLONIDINE [Concomitant]
     Indication: ANXIETY
     Dosage: 0.025 MG, UNK

REACTIONS (1)
  - Application site irritation [Not Recovered/Not Resolved]
